FAERS Safety Report 7658162-9 (Version None)
Quarter: 2011Q3

REPORT INFORMATION
  Report Type: 
  Country: None (occurrence: None)
  Receive Date: 20110805
  Receipt Date: 20110725
  Transmission Date: 20111222
  Serious: No
  Sender: FDA-Public Use
  Company Number: PHHY2011US61588

PATIENT
  Sex: Female
  Weight: 122 kg

DRUGS (10)
  1. BENAZEPRIL HYDROCHLORIDE [Concomitant]
     Dosage: UNK
  2. TASIGNA [Suspect]
     Dosage: 300 MG, BID
     Route: 048
  3. PROAIR HFA AEROSOL [Concomitant]
  4. HYDROCHLOROT [Concomitant]
     Dosage: 12.5 MG, UNK
  5. OMEPRAZOLE [Concomitant]
     Dosage: 20 MG, UNK
  6. HYDRALAZINE HCL [Concomitant]
     Dosage: 10 MG, UNK
  7. METOPROL [Concomitant]
     Dosage: 25 MG, UNK
  8. CLONIDINE [Concomitant]
     Dosage: 0.1 MG, UNK
  9. NITROGLYCER [Concomitant]
     Dosage: 0.1 MG, UNK
  10. METOCLOPRAMIDE [Concomitant]

REACTIONS (3)
  - HEADACHE [None]
  - MUSCLE SPASMS [None]
  - NAUSEA [None]
